APPROVED DRUG PRODUCT: COMBUNOX
Active Ingredient: IBUPROFEN; OXYCODONE HYDROCHLORIDE
Strength: 400MG;5MG **Federal Register determination that product was not discontinued or withdrawn for safety or effectiveness reasons**
Dosage Form/Route: TABLET;ORAL
Application: N021378 | Product #001
Applicant: FOREST LABORATORIES INC
Approved: Nov 26, 2004 | RLD: Yes | RS: No | Type: DISCN